FAERS Safety Report 23526259 (Version 2)
Quarter: 2024Q1

REPORT INFORMATION
  Report Type: Report from Study
  Country: FR (occurrence: FR)
  Receive Date: 20240215
  Receipt Date: 20240228
  Transmission Date: 20240409
  Serious: Yes (Hospitalization, Other)
  Sender: FDA-Public Use
  Company Number: FR-002147023-NVSC2024FR006539

PATIENT
  Age: 16 Year
  Sex: Female
  Weight: 46 kg

DRUGS (14)
  1. MAS-825 [Suspect]
     Active Substance: MAS-825
     Indication: PSTPIP1-associated myeloid-related proteinaemia inflammatory syndrome
     Dosage: 10 MG/KG, Q2W (EVERY 2 WEEKS)
     Route: 042
     Dates: start: 20230719, end: 20231218
  2. NEORAL [Interacting]
     Active Substance: CYCLOSPORINE
     Indication: Prophylaxis against graft versus host disease
     Dosage: 90 MG, Q12H
     Route: 065
     Dates: start: 20231026, end: 20231227
  3. NEORAL [Interacting]
     Active Substance: CYCLOSPORINE
     Dosage: 2.5 MG/KG, Q12H, (110 MG)
     Route: 065
  4. VALACYCLOVIR HYDROCHLORIDE [Interacting]
     Active Substance: VALACYCLOVIR HYDROCHLORIDE
     Indication: Herpes simplex
     Dosage: 500 MG, BID, (MORNING AND EVENING)
     Route: 065
     Dates: start: 20231026, end: 20240127
  5. LETERMOVIR [Concomitant]
     Active Substance: LETERMOVIR
     Indication: Product used for unknown indication
     Dosage: 240 MG, QD
     Route: 065
  6. BACTRIM [Concomitant]
     Active Substance: SULFAMETHOXAZOLE\TRIMETHOPRIM
     Indication: Antifungal prophylaxis
     Dosage: 25 MG/KG, TIW (800 MG) (MONDAY-WEDNESDAY-FRIDAY)
     Route: 065
     Dates: start: 20231114, end: 20240127
  7. ACETAMINOPHEN [Concomitant]
     Active Substance: ACETAMINOPHEN
     Indication: Pain
     Dosage: 15 MG/KG, Q6H, (500 MG)
     Route: 065
  8. MAGNESIUM [Concomitant]
     Active Substance: MAGNESIUM
     Indication: Product used for unknown indication
     Dosage: 1 DOSAGE FORM, QD, (1 VIAL)
     Route: 065
  9. ADEFOVIR [Concomitant]
     Active Substance: ADEFOVIR
     Indication: Product used for unknown indication
     Dosage: UNK
     Route: 065
  10. CIDOFOVIR [Concomitant]
     Active Substance: CIDOFOVIR
     Indication: Product used for unknown indication
     Dosage: UNK
     Route: 065
  11. TENOFOVIR [Concomitant]
     Active Substance: TENOFOVIR
     Indication: Product used for unknown indication
     Dosage: UNK
     Route: 065
  12. INDINAVIR [Concomitant]
     Active Substance: INDINAVIR
     Indication: Product used for unknown indication
     Dosage: UNK
     Route: 065
  13. GANCICLOVIR [Concomitant]
     Active Substance: GANCICLOVIR
     Indication: Product used for unknown indication
     Dosage: UNK
     Route: 065
  14. RUXOLITINIB [Concomitant]
     Active Substance: RUXOLITINIB
     Indication: Transplant
     Dosage: 10 MG/M2 12 H
     Route: 065
     Dates: start: 20240102, end: 20240127

REACTIONS (12)
  - Acute kidney injury [Recovered/Resolved]
  - Blood creatinine increased [Unknown]
  - Blood urea increased [Unknown]
  - Albumin urine [Unknown]
  - Decreased appetite [Recovered/Resolved]
  - Oral herpes [Recovered/Resolved]
  - Pyrexia [Unknown]
  - Stomatitis [Unknown]
  - Graft versus host disease in gastrointestinal tract [Unknown]
  - Inflammation [Unknown]
  - Depressed mood [Unknown]
  - Drug interaction [Unknown]

NARRATIVE: CASE EVENT DATE: 20230101
